FAERS Safety Report 8425376-X (Version None)
Quarter: 2012Q2

REPORT INFORMATION
  Report Type: 
  Country: None (occurrence: None)
  Receive Date: 20120605
  Receipt Date: 20120605
  Transmission Date: 20120825
  Serious: No
  Sender: FDA-Public Use
  Company Number: None

PATIENT
  Age: 49 Year
  Sex: Female

DRUGS (1)
  1. DELSYM [Suspect]
     Dates: start: 20120518

REACTIONS (4)
  - FEELING OF BODY TEMPERATURE CHANGE [None]
  - TREMOR [None]
  - NAUSEA [None]
  - PALPITATIONS [None]
